FAERS Safety Report 12871200 (Version 1)
Quarter: 2016Q4

REPORT INFORMATION
  Report Type: Spontaneous
  Country: US (occurrence: US)
  Receive Date: 20161020
  Receipt Date: 20161020
  Transmission Date: 20170207
  Serious: No
  Sender: FDA-Public Use
  Company Number: None

PATIENT
  Age: 67 Year
  Sex: Male

DRUGS (1)
  1. COTELLIC [Suspect]
     Active Substance: COBIMETINIB
     Indication: PRODUCT USED FOR UNKNOWN INDICATION
     Dosage: COTELLIC 60 MG - PO - DAILY 21 DAYS ON, 7
     Route: 048
     Dates: start: 20160603

REACTIONS (1)
  - Candida infection [None]

NARRATIVE: CASE EVENT DATE: 20160901
